FAERS Safety Report 20031721 (Version 1)
Quarter: 2021Q4

REPORT INFORMATION
  Report Type: Report from Study
  Country: US (occurrence: US)
  Receive Date: 20211103
  Receipt Date: 20211103
  Transmission Date: 20220303
  Serious: Yes (Hospitalization)
  Sender: FDA-Public Use
  Company Number: US-ABBVIE-21K-163-4141493-00

PATIENT
  Sex: Male

DRUGS (2)
  1. VENCLEXTA [Suspect]
     Active Substance: VENETOCLAX
     Indication: Chronic lymphocytic leukaemia
     Dosage: ON MONDAY, WEDNESDAY, FRIDAY AND SATURDAY
     Route: 048
     Dates: start: 20200805
  2. VENCLEXTA [Suspect]
     Active Substance: VENETOCLAX
     Dosage: ON TUESDAY AND THURSDAY
     Route: 048

REACTIONS (2)
  - B-cell lymphoma [Unknown]
  - Therapeutic product effect decreased [Unknown]
